FAERS Safety Report 25881386 (Version 1)
Quarter: 2025Q4

REPORT INFORMATION
  Report Type: Spontaneous
  Country: GB (occurrence: GB)
  Receive Date: 20251005
  Receipt Date: 20251005
  Transmission Date: 20260119
  Serious: Yes (Hospitalization, Other)
  Sender: DIFGEN PHARMACEUTICALS LLC
  Company Number: GB-Difgen-012162

PATIENT
  Age: 56 Year
  Sex: Female

DRUGS (1)
  1. BUPRENORPHINE [Suspect]
     Active Substance: BUPRENORPHINE
     Indication: Intentional product misuse
     Dosage: TABLET
     Route: 060

REACTIONS (14)
  - Delusion [Recovering/Resolving]
  - Screaming [Recovering/Resolving]
  - Aggression [Recovering/Resolving]
  - Pressure of speech [Recovering/Resolving]
  - Flight of ideas [Recovering/Resolving]
  - Tangentiality [Recovering/Resolving]
  - Personality change [Recovering/Resolving]
  - Paranoia [Recovering/Resolving]
  - Psychotic behaviour [Recovering/Resolving]
  - Mental impairment [Recovering/Resolving]
  - Insomnia [Recovering/Resolving]
  - Decreased appetite [Recovering/Resolving]
  - Euphoric mood [Recovering/Resolving]
  - Agitation [Recovering/Resolving]
